FAERS Safety Report 23491841 (Version 2)
Quarter: 2024Q1

REPORT INFORMATION
  Report Type: Spontaneous
  Country: GR (occurrence: GR)
  Receive Date: 20240207
  Receipt Date: 20240212
  Transmission Date: 20240409
  Serious: Yes (Other)
  Sender: FDA-Public Use
  Company Number: None

PATIENT
  Age: 55 Year
  Sex: Female

DRUGS (8)
  1. ASPERCREME LIDOCAINE NO-MESS PLUS LAVENDER [Suspect]
     Active Substance: LIDOCAINE HYDROCHLORIDE
     Indication: Product used for unknown indication
     Dosage: UNK
     Route: 065
  2. METHYLPREDNISOLONE [Suspect]
     Active Substance: METHYLPREDNISOLONE
     Indication: Product used for unknown indication
     Dosage: UNK
     Route: 065
  3. AMOXICILLIN [Suspect]
     Active Substance: AMOXICILLIN
     Indication: Product used for unknown indication
     Dosage: UNK
     Route: 065
  4. IOBITRIDOL [Suspect]
     Active Substance: IOBITRIDOL
     Indication: Product used for unknown indication
     Dosage: UNK
     Route: 065
  5. IOPAMIDOL [Suspect]
     Active Substance: IOPAMIDOL
     Indication: Product used for unknown indication
     Dosage: UNK
     Route: 065
  6. IOPROMIDE [Suspect]
     Active Substance: IOPROMIDE
     Indication: Product used for unknown indication
     Dosage: UNK
     Route: 065
  7. IODIXANOL [Suspect]
     Active Substance: IODIXANOL
     Indication: Product used for unknown indication
     Dosage: UNK
     Route: 065
  8. IOMEPROL [Suspect]
     Active Substance: IOMEPROL
     Indication: Product used for unknown indication
     Dosage: UNK
     Route: 065

REACTIONS (2)
  - Type I hypersensitivity [Unknown]
  - Anaphylactic reaction [Unknown]
